FAERS Safety Report 4852049-2 (Version None)
Quarter: 2005Q4

REPORT INFORMATION
  Report Type: 
  Country: None (occurrence: None)
  Receive Date: 20051213
  Receipt Date: 20051206
  Transmission Date: 20060501
  Serious: Yes (Other)
  Sender: FDA-Public Use
  Company Number: CA-ROCHE-427484

PATIENT
  Age: 69 Year
  Sex: Male

DRUGS (1)
  1. DIAZEPAM [Suspect]
     Indication: DRUG USE FOR UNKNOWN INDICATION
     Route: 065

REACTIONS (4)
  - HYPOTENSION [None]
  - MIOSIS [None]
  - PAIN [None]
  - SOMNOLENCE [None]
